FAERS Safety Report 25427765 (Version 2)
Quarter: 2025Q2

REPORT INFORMATION
  Report Type: Report from Study
  Country: US (occurrence: US)
  Receive Date: 20250612
  Receipt Date: 20250616
  Transmission Date: 20250717
  Serious: Yes (Other)
  Sender: PFIZER
  Company Number: US-PFIZER INC-202500117941

PATIENT
  Age: 74 Year
  Sex: Female

DRUGS (13)
  1. VYNDAQEL [Suspect]
     Active Substance: TAFAMIDIS MEGLUMINE
     Dosage: 4 CAPSULES (80 MG) BY MOUTH ONCE DAILY
     Route: 048
  2. ELIQUIS [Concomitant]
     Active Substance: APIXABAN
  3. OMEPRAZOLE [Concomitant]
     Active Substance: OMEPRAZOLE
  4. CEVIMELINE [Concomitant]
     Active Substance: CEVIMELINE
  5. PRAVASTATIN [Concomitant]
     Active Substance: PRAVASTATIN
  6. NORTRIPTYLINE [Concomitant]
     Active Substance: NORTRIPTYLINE
  7. OZEMPIC [Concomitant]
     Active Substance: SEMAGLUTIDE
  8. LOSARTAN [Concomitant]
     Active Substance: LOSARTAN
  9. OFEV [Concomitant]
     Active Substance: NINTEDANIB
  10. JARDIANCE [Concomitant]
     Active Substance: EMPAGLIFLOZIN
  11. PREGABALIN [Concomitant]
     Active Substance: PREGABALIN
  12. FUROSEMIDE [Concomitant]
     Active Substance: FUROSEMIDE
  13. POTASSIUM CHLORIDE [Concomitant]
     Active Substance: POTASSIUM CHLORIDE

REACTIONS (6)
  - Back pain [Not Recovered/Not Resolved]
  - Pulmonary fibrosis [Not Recovered/Not Resolved]
  - Depressed mood [Recovered/Resolved]
  - Dyspnoea [Not Recovered/Not Resolved]
  - Dizziness [Not Recovered/Not Resolved]
  - Gait disturbance [Not Recovered/Not Resolved]
